FAERS Safety Report 4741652-6 (Version None)
Quarter: 2005Q3

REPORT INFORMATION
  Report Type: 
  Country: None (occurrence: None)
  Receive Date: 20050801
  Receipt Date: 20050607
  Transmission Date: 20060218
  Serious: No
  Sender: FDA-Public Use
  Company Number: 2005PV000020

PATIENT
  Age: 34 Year
  Sex: Female

DRUGS (7)
  1. BYETTA [Suspect]
     Indication: DIABETES MELLITUS NON-INSULIN-DEPENDENT
     Dosage: 5 UG; BID; SC
     Route: 058
     Dates: start: 20050606
  2. GLUCOVANCE [Concomitant]
  3. PRECOSE [Concomitant]
  4. MULTIVIT [Concomitant]
  5. ASCORBIC ACID [Concomitant]
  6. CHROMIUM [Concomitant]
  7. ALTACE [Concomitant]

REACTIONS (8)
  - BLOOD GLUCOSE INCREASED [None]
  - DIZZINESS [None]
  - DRY MOUTH [None]
  - FATIGUE [None]
  - FEELING HOT [None]
  - FEELING JITTERY [None]
  - INSOMNIA [None]
  - NAUSEA [None]
